FAERS Safety Report 19767670 (Version 1)
Quarter: 2021Q3

REPORT INFORMATION
  Report Type: Spontaneous
  Country: CN (occurrence: CN)
  Receive Date: 20210830
  Receipt Date: 20210830
  Transmission Date: 20211014
  Serious: Yes (Hospitalization, Other)
  Sender: FDA-Public Use
  Company Number: CN-PFIZER INC-202101065308

PATIENT
  Age: 64 Year
  Sex: Male
  Weight: 59 kg

DRUGS (1)
  1. TAZOCIN [Suspect]
     Active Substance: PIPERACILLIN SODIUM\TAZOBACTAM SODIUM
     Indication: ANTI-INFECTIVE THERAPY
     Dosage: 4.5 G, 3X/DAY
     Route: 041
     Dates: start: 20210813, end: 20210813

REACTIONS (3)
  - Wheezing [Recovering/Resolving]
  - Suffocation feeling [Recovering/Resolving]
  - Anaphylactic shock [Recovering/Resolving]

NARRATIVE: CASE EVENT DATE: 20210813
